FAERS Safety Report 8392021-1 (Version None)
Quarter: 2012Q2

REPORT INFORMATION
  Report Type: 
  Country: None (occurrence: None)
  Receive Date: 20120529
  Receipt Date: 20120515
  Transmission Date: 20120825
  Serious: Yes (Hospitalization)
  Sender: FDA-Public Use
  Company Number: US-UCBSA-057617

PATIENT
  Age: 55 Year
  Sex: Female

DRUGS (3)
  1. TACROLIMUS [Concomitant]
     Indication: SKIN ULCER
     Route: 061
  2. STEROIDS [Concomitant]
     Indication: SKIN ULCER
     Route: 026
  3. CIMZIA [Suspect]
     Indication: SKIN ULCER
     Dosage: UNKNOWN DOSE

REACTIONS (1)
  - SKIN ULCER [None]
